FAERS Safety Report 20526903 (Version 3)
Quarter: 2022Q1

REPORT INFORMATION
  Report Type: Report from Study
  Country: US (occurrence: US)
  Receive Date: 20220228
  Receipt Date: 20220324
  Transmission Date: 20220423
  Serious: Yes (Other)
  Sender: FDA-Public Use
  Company Number: US-ABBVIE-21K-163-4215557-00

PATIENT
  Age: 65 Year
  Sex: Female
  Weight: 86.260 kg

DRUGS (7)
  1. HUMIRA [Suspect]
     Active Substance: ADALIMUMAB
     Indication: Psoriasis
     Dosage: CITRATE FREE
     Route: 058
     Dates: start: 202004, end: 202103
  2. HUMIRA [Suspect]
     Active Substance: ADALIMUMAB
     Indication: Eczema
     Dosage: CITRATE FREE
     Route: 058
     Dates: start: 202104, end: 202109
  3. HUMIRA [Suspect]
     Active Substance: ADALIMUMAB
     Dosage: CITRATE FREE
     Route: 058
     Dates: start: 202110, end: 20211127
  4. HUMIRA [Suspect]
     Active Substance: ADALIMUMAB
     Dosage: CITRATE FREE
     Route: 058
     Dates: start: 20211227, end: 20220208
  5. HUMIRA [Suspect]
     Active Substance: ADALIMUMAB
     Dosage: CITRATE FREE
     Route: 058
     Dates: start: 20220225
  6. AMBIEN [Concomitant]
     Active Substance: ZOLPIDEM TARTRATE
     Indication: Product used for unknown indication
  7. BENICAR [Concomitant]
     Active Substance: OLMESARTAN MEDOXOMIL
     Indication: Product used for unknown indication

REACTIONS (15)
  - Carpal tunnel syndrome [Recovered/Resolved]
  - Elbow operation [Unknown]
  - Spinal operation [Recovered/Resolved]
  - Uterine dilation and curettage [Not Recovered/Not Resolved]
  - Osteoarthritis [Recovering/Resolving]
  - Nerve compression [Recovered/Resolved]
  - Carpal tunnel syndrome [Recovered/Resolved]
  - Vaginal haemorrhage [Recovered/Resolved]
  - Polyp [Recovered/Resolved]
  - Muscle spasms [Recovered/Resolved]
  - Off label use [Not Recovered/Not Resolved]
  - Rash macular [Not Recovered/Not Resolved]
  - Post procedural swelling [Unknown]
  - Procedural pain [Unknown]
  - Spinal pain [Not Recovered/Not Resolved]

NARRATIVE: CASE EVENT DATE: 20200501
